FAERS Safety Report 14664905 (Version 2)
Quarter: 2018Q1

REPORT INFORMATION
  Report Type: Report from Study
  Country: GB (occurrence: GB)
  Receive Date: 20180321
  Receipt Date: 20180322
  Transmission Date: 20180509
  Serious: Yes (Hospitalization, Other)
  Sender: FDA-Public Use
  Company Number: GB-PFIZER INC-2018109061

PATIENT
  Age: 74 Year
  Sex: Male

DRUGS (2)
  1. METHOTREXATE SODIUM. [Suspect]
     Active Substance: METHOTREXATE SODIUM
     Dosage: UNK
     Route: 065
  2. HUMIRA [Suspect]
     Active Substance: ADALIMUMAB
     Dosage: 40 MG, UNK
     Route: 058
     Dates: start: 20161109

REACTIONS (5)
  - Dyspnoea [Unknown]
  - Platelet count decreased [Unknown]
  - Viral infection [Unknown]
  - C-reactive protein decreased [Unknown]
  - Palpitations [Unknown]

NARRATIVE: CASE EVENT DATE: 201801
